FAERS Safety Report 6831078-3 (Version None)
Quarter: 2010Q3

REPORT INFORMATION
  Report Type: 
  Country: None (occurrence: None)
  Receive Date: 20100712
  Receipt Date: 20100609
  Transmission Date: 20110219
  Serious: No
  Sender: FDA-Public Use
  Company Number: US-BAYER-201016889BCC

PATIENT
  Age: 60 Year
  Sex: Female
  Weight: 72 kg

DRUGS (7)
  1. ALEVE (CAPLET) [Suspect]
     Indication: OSTEOARTHRITIS
     Dosage: SOMETIMES SHE TOOK 1 CAPLET AND SOMETIMES SHE TOOK 2 CAPLETS.
     Route: 048
     Dates: start: 20100101
  2. MIRTAZAPINE [Concomitant]
  3. TOPROL-XL [Concomitant]
  4. NATURE MADE VITAMIN E [Concomitant]
  5. KLONOPIN [Concomitant]
  6. NASONEX [Concomitant]
  7. UNKNOWN HORMONE MEDICATION [Concomitant]

REACTIONS (2)
  - ARTHRALGIA [None]
  - WEIGHT INCREASED [None]
